FAERS Safety Report 9304220 (Version 1)
Quarter: 2013Q2

REPORT INFORMATION
  Report Type: Report from Study
  Country: DE (occurrence: NL)
  Receive Date: 20130522
  Receipt Date: 20130522
  Transmission Date: 20140414
  Serious: Yes (Death, Hospitalization)
  Sender: FDA-Public Use
  Company Number: DE-ACTELION-A-US2013-82359

PATIENT
  Age: 82 Year
  Sex: Female

DRUGS (15)
  1. VENTAVIS [Suspect]
     Indication: PULMONARY ARTERIAL HYPERTENSION
     Dosage: 6 TIMES A DAY
     Route: 055
     Dates: start: 20120711
  2. ESOMEPRAZOLE [Concomitant]
  3. METOCLOPRAMIDE [Concomitant]
  4. LEKOVIT CA [Concomitant]
  5. SLOW-K [Concomitant]
  6. ACENOCOUMAROL [Concomitant]
  7. VOLIBRIS [Concomitant]
  8. REVATIO [Concomitant]
  9. PREDNISON [Concomitant]
  10. FUROSEMIDE [Concomitant]
  11. SPIRONOLACTONE [Concomitant]
  12. FLUCLOXACILLINE [Concomitant]
  13. CIPROFLOXACINE [Concomitant]
  14. FERROFUMARAT [Concomitant]
  15. PROLIA [Concomitant]

REACTIONS (3)
  - Death [Fatal]
  - Neoplasm malignant [Unknown]
  - Ascites [Unknown]
